FAERS Safety Report 10656674 (Version 1)
Quarter: 2014Q4

REPORT INFORMATION
  Report Type: Spontaneous
  Country: JP (occurrence: JP)
  Receive Date: 20141216
  Receipt Date: 20141216
  Transmission Date: 20150529
  Serious: Yes (Other)
  Sender: FDA-Public Use
  Company Number: JP-009507513-1412JPN006489

PATIENT
  Sex: Female

DRUGS (1)
  1. NU-LOTAN [Suspect]
     Active Substance: LOSARTAN POTASSIUM
     Route: 048

REACTIONS (3)
  - Hyponatraemia [Unknown]
  - Loss of consciousness [Unknown]
  - Influenza [Unknown]
